FAERS Safety Report 13705391 (Version 1)
Quarter: 2017Q2

REPORT INFORMATION
  Report Type: Spontaneous
  Country: US (occurrence: US)
  Receive Date: 20170630
  Receipt Date: 20170630
  Transmission Date: 20170830
  Serious: Yes (Hospitalization)
  Sender: FDA-Public Use
  Company Number: None

PATIENT
  Age: 35 Year
  Sex: Male
  Weight: 94.2 kg

DRUGS (2)
  1. ARBACLOFEN 20MG ER [Suspect]
     Active Substance: BACLOFEN
     Indication: MULTIPLE SCLEROSIS
     Route: 048
     Dates: start: 20170618, end: 20170627
  2. ARBACLOFEN 20MG ER [Suspect]
     Active Substance: BACLOFEN
     Indication: MUSCLE SPASTICITY
     Route: 048
     Dates: start: 20170618, end: 20170627

REACTIONS (4)
  - Haematemesis [None]
  - Abdominal pain upper [None]
  - Epistaxis [None]
  - Nausea [None]

NARRATIVE: CASE EVENT DATE: 20170627
